FAERS Safety Report 5911779-1 (Version None)
Quarter: 2008Q4

REPORT INFORMATION
  Report Type: 
  Country: None (occurrence: None)
  Receive Date: 20081008
  Receipt Date: 20081003
  Transmission Date: 20090506
  Serious: Yes (Life-Threatening, Hospitalization)
  Sender: FDA-Public Use
  Company Number: DE-JNJFOC-20080904474

PATIENT
  Age: 56 Year
  Sex: Male

DRUGS (3)
  1. TAVANIC [Suspect]
     Indication: SINUSITIS
     Route: 048
  2. TAVANIC [Suspect]
     Indication: BRONCHITIS
     Route: 048
  3. GELOMYRTOL [Suspect]
     Indication: BRONCHITIS
     Route: 048

REACTIONS (4)
  - ANAPHYLACTIC SHOCK [None]
  - ATRIAL FIBRILLATION [None]
  - HYPOKALAEMIA [None]
  - PRURITUS GENERALISED [None]
